FAERS Safety Report 17786970 (Version 5)
Quarter: 2020Q2

REPORT INFORMATION
  Report Type: Report from Study
  Country: BE (occurrence: BE)
  Receive Date: 20200514
  Receipt Date: 20200622
  Transmission Date: 20200714
  Serious: Yes (Other)
  Sender: FDA-Public Use
  Company Number: BE-INCYTE CORPORATION-2018IN009027

PATIENT

DRUGS (25)
  1. LIPANTHYLNANO [Concomitant]
     Active Substance: FENOFIBRATE
     Indication: DYSLIPIDAEMIA
     Dosage: 145 OT
     Route: 065
     Dates: start: 20120315
  2. HYDREA [Concomitant]
     Active Substance: HYDROXYUREA
     Dosage: 1166.67 OT
     Route: 065
     Dates: start: 20160303, end: 20171212
  3. HYDREA [Concomitant]
     Active Substance: HYDROXYUREA
     Dosage: 500 OT
     Route: 065
     Dates: start: 20160112
  4. UNI DIAMICRON [Concomitant]
     Active Substance: GLICLAZIDE
     Indication: TYPE 2 DIABETES MELLITUS
     Dosage: 90 OT
     Route: 065
     Dates: start: 20190703
  5. JAKAVI [Suspect]
     Active Substance: RUXOLITINIB
     Dosage: 10 OT
     Route: 048
     Dates: start: 20171213, end: 20180207
  6. DAFALGAN [Concomitant]
     Active Substance: ACETAMINOPHEN
     Indication: HEADACHE
     Dosage: 1 OT, UNK
     Route: 065
     Dates: start: 2002
  7. FOLIC ACID. [Concomitant]
     Active Substance: FOLIC ACID
     Indication: PROPHYLAXIS
     Dosage: 1 OT
     Route: 065
     Dates: start: 20030128
  8. ASAFLOW [Concomitant]
     Active Substance: ASPIRIN
     Dosage: 80 OT
     Route: 065
     Dates: start: 20120405
  9. ROZEX [METRONIDAZOLE] [Concomitant]
     Indication: POROKERATOSIS
     Dosage: 1 OT
     Route: 065
     Dates: start: 20180323
  10. JAKAVI [Suspect]
     Active Substance: RUXOLITINIB
     Dosage: 50 OT, UNK
     Route: 048
     Dates: start: 20180726, end: 20180726
  11. COZAAR [Concomitant]
     Active Substance: LOSARTAN POTASSIUM
     Indication: HYPERTENSION
     Dosage: 50 OT
     Route: 065
     Dates: start: 20190315
  12. ATORSTATINEG [Concomitant]
     Indication: HYPERTRIGLYCERIDAEMIA
     Dosage: 2 OT
     Route: 065
     Dates: start: 20180327
  13. JAKAVI [Suspect]
     Active Substance: RUXOLITINIB
     Dosage: 40 OT, UNK
     Route: 048
     Dates: start: 20180530, end: 20180725
  14. JAKAVI [Suspect]
     Active Substance: RUXOLITINIB
     Dosage: 30 OT
     Route: 048
     Dates: start: 20180307, end: 20180530
  15. COLITOFALK [Concomitant]
     Active Substance: MESALAMINE
     Indication: COLITIS ULCERATIVE
     Dosage: 1000 OT, UNK
     Route: 065
     Dates: start: 20060606
  16. VITAMIN D [VITAMIN D NOS] [Concomitant]
     Active Substance: VITAMIN D NOS
     Indication: MALIGNANT MELANOMA
     Dosage: 100000 OT
     Route: 065
     Dates: start: 20180115
  17. JAKAVI [Suspect]
     Active Substance: RUXOLITINIB
     Indication: POLYCYTHAEMIA VERA
     Dosage: 20 OT
     Route: 048
     Dates: start: 20171129, end: 201712
  18. JAKAVI [Suspect]
     Active Substance: RUXOLITINIB
     Dosage: 20 OT, UNK
     Route: 048
     Dates: start: 20190725
  19. ASAFLOW [Concomitant]
     Active Substance: ASPIRIN
     Indication: PROPHYLAXIS
     Dosage: 80 OT
     Route: 065
     Dates: start: 20020729
  20. JARDIANCE [Concomitant]
     Active Substance: EMPAGLIFLOZIN
     Indication: TYPE 2 DIABETES MELLITUS
     Dosage: 25 OT
     Route: 065
     Dates: start: 20180703
  21. JAKAVI [Suspect]
     Active Substance: RUXOLITINIB
     Dosage: 30 OT
     Route: 048
     Dates: start: 20180207, end: 20180208
  22. JAKAVI [Suspect]
     Active Substance: RUXOLITINIB
     Dosage: 20 OT
     Route: 048
     Dates: start: 20180208, end: 20180307
  23. JAKAVI [Suspect]
     Active Substance: RUXOLITINIB
     Dosage: 30 OT, UNK
     Route: 048
     Dates: start: 20190627, end: 20190724
  24. TETRALYSAL [LYMECYCLINE] [Concomitant]
     Active Substance: LYMECYCLINE
     Indication: POROKERATOSIS
     Dosage: 600 OT, UNK
     Route: 065
     Dates: start: 2017
  25. HYDREA [Concomitant]
     Active Substance: HYDROXYUREA
     Indication: POLYCYTHAEMIA VERA
     Dosage: UNK
     Route: 065
     Dates: start: 20020827, end: 20160302

REACTIONS (37)
  - Diarrhoea [Recovered/Resolved]
  - Fatigue [Recovered/Resolved]
  - Malignant melanoma in situ [Recovered/Resolved]
  - Cystitis [Recovered/Resolved]
  - Weight increased [Not Recovered/Not Resolved]
  - Nasopharyngitis [Recovered/Resolved]
  - Epistaxis [Recovered/Resolved]
  - Drug ineffective [Not Recovered/Not Resolved]
  - Paraesthesia [Not Recovered/Not Resolved]
  - Back pain [Not Recovered/Not Resolved]
  - Oesophageal candidiasis [Recovered/Resolved]
  - Sinus tarsi syndrome [Recovered/Resolved]
  - Anaemia [Recovered/Resolved]
  - Gastrooesophageal reflux disease [Not Recovered/Not Resolved]
  - Arthralgia [Not Recovered/Not Resolved]
  - Mood swings [Recovered/Resolved]
  - Pruritus [Recovered/Resolved]
  - Abdominal pain upper [Recovered/Resolved]
  - Hyperhidrosis [Recovered/Resolved]
  - Weight decreased [Not Recovered/Not Resolved]
  - Anaemia [Recovering/Resolving]
  - Colitis ischaemic [Recovered/Resolved]
  - Presyncope [Not Recovered/Not Resolved]
  - Non-cardiac chest pain [Recovered/Resolved]
  - Anal haemorrhage [Recovered/Resolved]
  - Facet joint syndrome [Not Recovered/Not Resolved]
  - Headache [Not Recovered/Not Resolved]
  - Sinus tarsi syndrome [Not Recovered/Not Resolved]
  - Anaemia [Recovered/Resolved]
  - Motor dysfunction [Not Recovered/Not Resolved]
  - Palpitations [Recovered/Resolved]
  - Pruritus [Recovered/Resolved]
  - Vertigo [Recovered/Resolved]
  - Anaemia [Recovered/Resolved]
  - Nasopharyngitis [Recovered/Resolved]
  - Drug ineffective [Recovered/Resolved]
  - Pruritus [Not Recovered/Not Resolved]

NARRATIVE: CASE EVENT DATE: 201712
